FAERS Safety Report 7868221-3 (Version None)
Quarter: 2011Q4

REPORT INFORMATION
  Report Type: 
  Country: None (occurrence: None)
  Receive Date: 20111028
  Receipt Date: 20111021
  Transmission Date: 20120403
  Serious: Yes (Other)
  Sender: FDA-Public Use
  Company Number: US-MERCK-0711USA04228

PATIENT
  Age: 40 Year
  Sex: Male
  Weight: 94 kg

DRUGS (6)
  1. FINASTERIDE [Suspect]
     Route: 048
     Dates: start: 20070101, end: 20070101
  2. VITAMINS (UNSPECIFIED) [Concomitant]
     Route: 065
  3. PROPECIA [Suspect]
     Indication: ALOPECIA
     Route: 048
     Dates: start: 20050101, end: 20070501
  4. PROPECIA [Suspect]
     Indication: ANDROGENETIC ALOPECIA
     Route: 048
     Dates: start: 20050101, end: 20070501
  5. PROSCAR [Suspect]
     Route: 048
     Dates: start: 20050101
  6. ACYCLOVIR [Concomitant]
     Route: 065

REACTIONS (20)
  - SUICIDAL IDEATION [None]
  - BLOOD TESTOSTERONE DECREASED [None]
  - ANXIETY [None]
  - FATIGUE [None]
  - PARANOIA [None]
  - EJACULATION FAILURE [None]
  - EJACULATION DISORDER [None]
  - PALPITATIONS [None]
  - WRONG TECHNIQUE IN DRUG USAGE PROCESS [None]
  - HYPERHIDROSIS [None]
  - DIZZINESS [None]
  - REFUSAL OF TREATMENT BY PATIENT [None]
  - CHEST PAIN [None]
  - SEXUAL DYSFUNCTION [None]
  - DEPRESSION [None]
  - DRUG INTOLERANCE [None]
  - ERECTILE DYSFUNCTION [None]
  - INSOMNIA [None]
  - LIBIDO DECREASED [None]
  - SEMEN ANALYSIS ABNORMAL [None]
